FAERS Safety Report 8592211-9 (Version None)
Quarter: 2012Q3

REPORT INFORMATION
  Report Type: 
  Country: None (occurrence: None)
  Receive Date: 20120814
  Receipt Date: 20120808
  Transmission Date: 20120928
  Serious: Yes (Other)
  Sender: FDA-Public Use
  Company Number: JP-VERTEX PHARMACEUTICALS INC.-AE-2012-005162

PATIENT
  Age: 70 Year
  Sex: Female

DRUGS (6)
  1. TELAVIC [Suspect]
     Route: 048
     Dates: start: 20120402
  2. REBETOL [Concomitant]
     Indication: HEPATITIS C
     Route: 048
     Dates: start: 20120216, end: 20120311
  3. REBETOL [Concomitant]
     Route: 048
     Dates: start: 20120312
  4. PEGINTERFERON ALFA-2B [Concomitant]
     Indication: HEPATITIS C
     Route: 058
     Dates: start: 20120216
  5. ALLEGRA [Concomitant]
     Route: 048
     Dates: start: 20120217, end: 20120318
  6. TELAVIC [Suspect]
     Indication: HEPATITIS C
     Route: 048
     Dates: start: 20120216, end: 20120401

REACTIONS (1)
  - RASH [None]
